FAERS Safety Report 6474393-8 (Version None)
Quarter: 2009Q4

REPORT INFORMATION
  Report Type: 
  Country: None (occurrence: None)
  Receive Date: 20091204
  Receipt Date: 20091201
  Transmission Date: 20100525
  Serious: Yes (Hospitalization, Other)
  Sender: FDA-Public Use
  Company Number: DE-EISAI INC.-E2020-05416-SPO-DE

PATIENT
  Sex: Male
  Weight: 72 kg

DRUGS (2)
  1. ARICEPT [Suspect]
     Indication: DRUG USE FOR UNKNOWN INDICATION
     Route: 048
     Dates: start: 20081001, end: 20090801
  2. ARICEPT [Suspect]
     Dosage: 2.5 MILLIGRAM
     Route: 048
     Dates: start: 20090801, end: 20090801

REACTIONS (2)
  - PARTIAL SEIZURES [None]
  - SYNCOPE [None]
